FAERS Safety Report 9029251 (Version 1)
Quarter: 2013Q1

REPORT INFORMATION
  Report Type: Spontaneous
  Country: FR (occurrence: FR)
  Receive Date: 20130125
  Receipt Date: 20130125
  Transmission Date: 20140127
  Serious: Yes (Hospitalization, Other)
  Sender: FDA-Public Use
  Company Number: FR-009507513-1301FRA008707

PATIENT
  Age: 14 Year
  Sex: Female

DRUGS (2)
  1. VARNOLINE [Suspect]
     Indication: DYSMENORRHOEA
     Dosage: UNK
     Route: 048
     Dates: start: 201208, end: 20121001
  2. AVLOCARDYL [Suspect]
     Indication: PRODUCT USED FOR UNKNOWN INDICATION
     Dosage: 10 MG, QD
     Route: 048
     Dates: start: 201206, end: 201210

REACTIONS (13)
  - Pancreatitis [Recovering/Resolving]
  - Gastroenteritis [None]
  - Heart rate increased [None]
  - Metabolic acidosis [None]
  - Hyperglycaemia [None]
  - Hyponatraemia [None]
  - Allodynia [None]
  - Anxiety [None]
  - Glycosylated haemoglobin increased [None]
  - Lipase increased [None]
  - Bundle branch block right [None]
  - Hepatomegaly [None]
  - Hepatic steatosis [None]
